FAERS Safety Report 17709266 (Version 4)
Quarter: 2020Q2

REPORT INFORMATION
  Report Type: Spontaneous
  Country: PL (occurrence: PL)
  Receive Date: 20200426
  Receipt Date: 20200521
  Transmission Date: 20200714
  Serious: Yes (Hospitalization, Other)
  Sender: FDA-Public Use
  Company Number: PL-AUROBINDO-AUR-APL-2020-020482

PATIENT
  Age: 18 Year
  Sex: Male

DRUGS (12)
  1. OLANZAPINE. [Suspect]
     Active Substance: OLANZAPINE
     Indication: MANIA
     Dosage: 10 MILLIGRAM, ONCE A DAY, PER DAY
     Route: 065
  2. LITHIUM CARBONATE. [Suspect]
     Active Substance: LITHIUM CARBONATE
     Indication: BIPOLAR DISORDER
     Dosage: 750 MILLIGRAM, ONCE A DAY (PER DAY)
     Route: 065
  3. MOCLOBEMIDE [Concomitant]
     Active Substance: MOCLOBEMIDE
     Indication: DEPRESSION
     Dosage: 222 MILLIGRAM, ONCE A DAY
     Route: 065
  4. LAMOTRIGINE. [Suspect]
     Active Substance: LAMOTRIGINE
     Indication: MOOD SWINGS
     Dosage: 150 MILLIGRAM, ONCE A DAY, PER DAY
     Route: 065
  5. LITHIUM CARBONATE. [Suspect]
     Active Substance: LITHIUM CARBONATE
     Dosage: 1000 MILLIGRAM, ONCE A DAY (PER DAY)
     Route: 065
  6. SODIUM VALPROATE [Suspect]
     Active Substance: VALPROATE SODIUM
     Indication: BIPOLAR DISORDER
     Dosage: 900 MILLIGRAM, ONCE A DAY, PER DAY
     Route: 065
  7. PERAZINE [Suspect]
     Active Substance: PERAZINE
     Indication: MANIA
     Dosage: 100 MILLIGRAM, ONCE A DAY, PER DAY
     Route: 065
  8. VALPROIC ACID. [Suspect]
     Active Substance: VALPROIC ACID
     Indication: BIPOLAR DISORDER
     Dosage: 900 MILLIGRAM, ONCE A DAY
     Route: 065
  9. FLUPENTIXOL HYDROCHLORIDE [Concomitant]
     Active Substance: FLUPENTIXOL DIHYDROCHLORIDE
     Indication: BIPOLAR DISORDER
     Dosage: UNK
     Route: 065
  10. VALPROIC ACID. [Suspect]
     Active Substance: VALPROIC ACID
     Indication: DEPRESSION
  11. SULPIRIDE [Concomitant]
     Active Substance: SULPIRIDE
     Indication: BIPOLAR DISORDER
     Dosage: UNK
     Route: 065
  12. LAMOTRIGINE. [Suspect]
     Active Substance: LAMOTRIGINE
     Indication: BIPOLAR DISORDER

REACTIONS (14)
  - Liver function test increased [Unknown]
  - Drug ineffective [Recovering/Resolving]
  - Weight increased [Unknown]
  - Somnolence [Recovering/Resolving]
  - Aspartate aminotransferase increased [Unknown]
  - Dermatitis allergic [Unknown]
  - Alanine aminotransferase increased [Unknown]
  - Skin lesion [Unknown]
  - Leukopenia [Unknown]
  - Drug hypersensitivity [Unknown]
  - Dysuria [Unknown]
  - Increased appetite [Recovering/Resolving]
  - Off label use [Unknown]
  - Tremor [Unknown]
